FAERS Safety Report 5469557-6 (Version None)
Quarter: 2007Q3

REPORT INFORMATION
  Report Type: 
  Country: None (occurrence: None)
  Receive Date: 20070927
  Receipt Date: 20070920
  Transmission Date: 20080115
  Serious: Yes (Other)
  Sender: FDA-Public Use
  Company Number: US-JNJFOC-20070904293

PATIENT
  Age: 27 Year
  Sex: Female

DRUGS (1)
  1. REMICADE [Suspect]
     Indication: CROHN'S DISEASE
     Dosage: WEEK 0 AND 2
     Route: 042

REACTIONS (8)
  - ERYTHEMA [None]
  - HEADACHE [None]
  - HYPOXIA [None]
  - INFUSION RELATED REACTION [None]
  - PYREXIA [None]
  - SKIN REACTION [None]
  - TACHYCARDIA [None]
  - URTICARIA [None]
